FAERS Safety Report 12637431 (Version 2)
Quarter: 2016Q3

REPORT INFORMATION
  Report Type: Spontaneous
  Country: US (occurrence: US)
  Receive Date: 20160809
  Receipt Date: 20160824
  Transmission Date: 20161109
  Serious: No
  Sender: FDA-Public Use
  Company Number: US-BEH-2016061800

PATIENT
  Age: 32 Year
  Sex: Female
  Weight: 58.51 kg

DRUGS (25)
  1. CLONAZEPAM. [Concomitant]
     Active Substance: CLONAZEPAM
  2. PROBIOTIC [Concomitant]
     Active Substance: PROBIOTICS NOS
  3. AZELASTINE [Concomitant]
     Active Substance: AZELASTINE
  4. CITALOPRAM [Concomitant]
     Active Substance: CITALOPRAM HYDROBROMIDE
  5. ZYRTEC [Concomitant]
     Active Substance: CETIRIZINE HYDROCHLORIDE
  6. IRON [Concomitant]
     Active Substance: IRON
  7. ONDANSETRON [Concomitant]
     Active Substance: ONDANSETRON
  8. SODIUM CHLORIDE. [Concomitant]
     Active Substance: SODIUM CHLORIDE
  9. PRIVIGEN [Suspect]
     Active Substance: HUMAN IMMUNOGLOBULIN G
     Indication: IMMUNODEFICIENCY COMMON VARIABLE
     Dosage: 25 G, QMT
     Route: 042
  10. BOTOX [Concomitant]
     Active Substance: ONABOTULINUMTOXINA
  11. MIGRANAL [Concomitant]
     Active Substance: DIHYDROERGOTAMINE MESYLATE
  12. DULERA [Concomitant]
     Active Substance: FORMOTEROL FUMARATE DIHYDRATE\MOMETASONE FUROATE
  13. IBUPROFEN. [Concomitant]
     Active Substance: IBUPROFEN
  14. MELATONIN [Concomitant]
     Active Substance: MELATONIN
  15. GABAPENTIN. [Concomitant]
     Active Substance: GABAPENTIN
  16. LAMOTRIGINE. [Concomitant]
     Active Substance: LAMOTRIGINE
  17. ACETAMINOPHEN. [Concomitant]
     Active Substance: ACETAMINOPHEN
  18. EPIDUO [Concomitant]
     Active Substance: ADAPALENE\BENZOYL PEROXIDE
  19. NASONEX [Concomitant]
     Active Substance: MOMETASONE FUROATE
  20. PROAIR HFA [Concomitant]
     Active Substance: ALBUTEROL SULFATE
  21. EPIPEN [Concomitant]
     Active Substance: EPINEPHRINE
  22. EXCEDRIN EXTRA STRENGTH [Concomitant]
     Active Substance: ACETAMINOPHEN\ASPIRIN\CAFFEINE
  23. PROMETHAZINE [Concomitant]
     Active Substance: PROMETHAZINE\PROMETHAZINE HYDROCHLORIDE
  24. FIBER [Concomitant]
     Active Substance: PSYLLIUM HUSK
  25. DIPHENHYDRAMINE. [Concomitant]
     Active Substance: DIPHENHYDRAMINE

REACTIONS (1)
  - Oropharyngeal pain [Recovered/Resolved]

NARRATIVE: CASE EVENT DATE: 20160129
